FAERS Safety Report 16807730 (Version 1)
Quarter: 2019Q3

REPORT INFORMATION
  Report Type: Spontaneous
  Country: US (occurrence: US)
  Receive Date: 20190915
  Receipt Date: 20190915
  Transmission Date: 20191005
  Serious: No
  Sender: FDA-Public Use
  Company Number: US-009507513-1909USA002097

PATIENT
  Sex: Female

DRUGS (1)
  1. NEXPLANON [Suspect]
     Active Substance: ETONOGESTREL
     Dosage: A ROD
     Route: 059

REACTIONS (2)
  - Device defective [Unknown]
  - Complication of device insertion [Unknown]
